FAERS Safety Report 6145796-6 (Version None)
Quarter: 2009Q2

REPORT INFORMATION
  Report Type: 
  Country: None (occurrence: None)
  Receive Date: 20090407
  Receipt Date: 20090331
  Transmission Date: 20091009
  Serious: Yes (Hospitalization)
  Sender: FDA-Public Use
  Company Number: US-ELI_LILLY_AND_COMPANY-US200903005218

PATIENT
  Sex: Female
  Weight: 71.202 kg

DRUGS (3)
  1. BYETTA [Suspect]
     Indication: TYPE 2 DIABETES MELLITUS
     Dosage: 5 UG, UNKNOWN
     Dates: start: 20070722, end: 20070827
  2. BYETTA [Suspect]
     Dosage: 10 UG, 2/D
     Dates: start: 20070827, end: 20081223
  3. METFORMIN HCL [Concomitant]
     Indication: TYPE 2 DIABETES MELLITUS
     Dosage: 500 MG, DAILY (1/D)
     Route: 048

REACTIONS (2)
  - PANCREATIC DUCT STENOSIS [None]
  - PANCREATITIS [None]
